FAERS Safety Report 13897808 (Version 2)
Quarter: 2017Q3

REPORT INFORMATION
  Report Type: Spontaneous
  Country: US (occurrence: US)
  Receive Date: 20170823
  Receipt Date: 20170823
  Transmission Date: 20171127
  Serious: No
  Sender: FDA-Public Use
  Company Number: US-BAYER-2017-158323

PATIENT
  Age: 75 Year
  Sex: Female

DRUGS (1)
  1. DESONATE [Suspect]
     Active Substance: DESONIDE
     Indication: DERMATITIS
     Dosage: 5 TIMES
     Route: 061

REACTIONS (3)
  - Application site pain [Recovered/Resolved]
  - Application site irritation [None]
  - Headache [None]
